FAERS Safety Report 17032745 (Version 8)
Quarter: 2020Q1

REPORT INFORMATION
  Report Type: Report from Study
  Country: HU (occurrence: HU)
  Receive Date: 20191114
  Receipt Date: 20200129
  Transmission Date: 20200409
  Serious: Yes (Death, Hospitalization)
  Sender: FDA-Public Use
  Company Number: HU-EISAI MEDICAL RESEARCH-EC-2019-065318

PATIENT
  Age: 72 Year
  Sex: Female
  Weight: 60 kg

DRUGS (18)
  1. COVEREX AS [Concomitant]
     Active Substance: PERINDOPRIL ARGININE
     Dates: start: 200301
  2. BISOPROLOL [Concomitant]
     Active Substance: BISOPROLOL
     Dates: start: 20190726
  3. AFLAMIN [Concomitant]
     Dates: start: 20190904
  4. ATORVASTATIN [Concomitant]
     Active Substance: ATORVASTATIN
     Dates: start: 200901
  5. MILURIT [Concomitant]
     Active Substance: ALLOPURINOL
     Dates: start: 201601
  6. MEGYRINA [Concomitant]
     Dates: start: 20190919
  7. PEMBROLIZUMAB. [Suspect]
     Active Substance: PEMBROLIZUMAB
     Route: 041
     Dates: start: 20191120
  8. COVEREX AS KOMB [Concomitant]
     Dates: start: 200201
  9. FOSTER [Concomitant]
     Active Substance: BECLOMETHASONE\FORMOTEROL
     Dates: start: 201301
  10. FRESUBIN ORIGINAL [Concomitant]
     Dates: start: 20191009
  11. BRINALDIX [Concomitant]
     Dates: start: 200401
  12. VENTOLIN [Concomitant]
     Active Substance: ALBUTEROL SULFATE
     Dates: start: 200701
  13. LENVATINIB [Suspect]
     Active Substance: LENVATINIB
     Indication: NON-SMALL CELL LUNG CANCER
     Route: 048
     Dates: start: 20191009
  14. PEMBROLIZUMAB. [Suspect]
     Active Substance: PEMBROLIZUMAB
     Indication: NON-SMALL CELL LUNG CANCER
     Route: 041
     Dates: start: 20191009, end: 20191009
  15. PEMBROLIZUMAB. [Suspect]
     Active Substance: PEMBROLIZUMAB
     Route: 041
     Dates: start: 20191030, end: 20191030
  16. TRAMADOL HYDROCHLORIDE. [Concomitant]
     Active Substance: TRAMADOL HYDROCHLORIDE
     Dates: start: 20190904
  17. CERUCAL [Concomitant]
     Active Substance: METOCLOPRAMIDE HYDROCHLORIDE
     Dates: start: 20191009
  18. NUTRIDRINK MAX [Concomitant]
     Dates: start: 20190919

REACTIONS (1)
  - Dehydration [Recovered/Resolved]

NARRATIVE: CASE EVENT DATE: 20191105
